FAERS Safety Report 11077757 (Version 2)
Quarter: 2015Q2

REPORT INFORMATION
  Report Type: Spontaneous
  Country: CA (occurrence: CA)
  Receive Date: 20150430
  Receipt Date: 20150521
  Transmission Date: 20150821
  Serious: Yes (Other)
  Sender: FDA-Public Use
  Company Number: CA-ROCHE-1570993

PATIENT
  Age: 67 Year
  Sex: Female

DRUGS (5)
  1. ALVESCO [Concomitant]
     Active Substance: CICLESONIDE
  2. PREDNISONE. [Concomitant]
     Active Substance: PREDNISONE
  3. XOLAIR [Suspect]
     Active Substance: OMALIZUMAB
     Indication: ASTHMA
     Route: 058
     Dates: start: 20150205
  4. SYMBICORT [Concomitant]
     Active Substance: BUDESONIDE\FORMOTEROL FUMARATE DIHYDRATE
  5. HYZAAR [Concomitant]
     Active Substance: HYDROCHLOROTHIAZIDE\LOSARTAN POTASSIUM
     Dosage: MORE THAN 5 YEARS AT THE DOSE WRITTEN ON BOTTLE INDICATED ^ACT LOSARTAN HCT 50/12.5 MG^.
     Route: 065

REACTIONS (2)
  - Blood pressure systolic increased [Unknown]
  - Stress [Unknown]

NARRATIVE: CASE EVENT DATE: 20150416
